FAERS Safety Report 15287447 (Version 1)
Quarter: 2018Q3

REPORT INFORMATION
  Report Type: Spontaneous
  Country: HK (occurrence: HK)
  Receive Date: 20180817
  Receipt Date: 20180817
  Transmission Date: 20181010
  Serious: Yes (Other)
  Sender: FDA-Public Use
  Company Number: HK-BRISTOL-MYERS SQUIBB COMPANY-BMS-2018-069342

PATIENT
  Age: 58 Year
  Sex: Female

DRUGS (4)
  1. OMNIPAQUE [Concomitant]
     Active Substance: IOHEXOL
     Indication: PRODUCT USED FOR UNKNOWN INDICATION
     Route: 065
  2. TRIAMCINOLONE ACETONIDE. [Suspect]
     Active Substance: TRIAMCINOLONE ACETONIDE
     Indication: BACK PAIN
     Dosage: 0.5 ML OF A PLANNED TOTAL INJECTATE OF 5 ML (0.375% ROPIVACAINE + 1 ML OF 40 MG/ML TRIAMCINOLONE)
     Route: 008
  3. ROPIVACAINE [Concomitant]
     Active Substance: ROPIVACAINE
     Indication: BACK PAIN
     Route: 008
  4. GABAPENTIN. [Concomitant]
     Active Substance: GABAPENTIN
     Indication: PRODUCT USED FOR UNKNOWN INDICATION
     Route: 065

REACTIONS (2)
  - Myoclonus [Recovered/Resolved]
  - Product use in unapproved indication [Unknown]
